FAERS Safety Report 12502418 (Version 5)
Quarter: 2017Q4

REPORT INFORMATION
  Report Type: Spontaneous
  Country: US (occurrence: US)
  Receive Date: 20160627
  Receipt Date: 20171228
  Transmission Date: 20180320
  Serious: Yes (Hospitalization, Other)
  Sender: FDA-Public Use
  Company Number: US-ACTELION-A-US2016-136604

PATIENT
  Age: 20 Year
  Sex: Female

DRUGS (19)
  1. LASIX [Concomitant]
     Active Substance: FUROSEMIDE
  2. TYLENOL [Concomitant]
     Active Substance: ACETAMINOPHEN
  3. ASPIRIN. [Concomitant]
     Active Substance: ASPIRIN
  4. OPSUMIT [Suspect]
     Active Substance: MACITENTAN
     Indication: PULMONARY ARTERIAL HYPERTENSION
     Dosage: 10 MG, QD
     Route: 048
     Dates: start: 20150825
  5. XARELTO [Concomitant]
     Active Substance: RIVAROXABAN
  6. NEXPLANON [Concomitant]
     Active Substance: ETONOGESTREL
  7. MELATONEX [Concomitant]
  8. LAMICTAL [Concomitant]
     Active Substance: LAMOTRIGINE
  9. LORAZEPAM. [Concomitant]
     Active Substance: LORAZEPAM
  10. MULTIVITAMIN [Concomitant]
     Active Substance: VITAMINS
  11. ENALAPRIL [Concomitant]
     Active Substance: ENALAPRIL
  12. UPTRAVI [Suspect]
     Active Substance: SELEXIPAG
     Indication: PULMONARY ARTERIAL HYPERTENSION
     Dosage: 1600 MCG, BID
     Route: 048
     Dates: start: 20160421
  13. UPTRAVI [Suspect]
     Active Substance: SELEXIPAG
     Dosage: 800 MCG, BID
     Route: 048
  14. ADCIRCA [Concomitant]
     Active Substance: TADALAFIL
  15. ZOLOFT [Concomitant]
     Active Substance: SERTRALINE HYDROCHLORIDE
  16. DIGOXIN. [Concomitant]
     Active Substance: DIGOXIN
  17. LOPRESSOR [Concomitant]
     Active Substance: METOPROLOL TARTRATE
  18. UPTRAVI [Suspect]
     Active Substance: SELEXIPAG
     Dosage: UNK
     Route: 048
     Dates: start: 20160420
  19. FUROSEMIDE. [Concomitant]
     Active Substance: FUROSEMIDE

REACTIONS (8)
  - Headache [Unknown]
  - Pain in extremity [Unknown]
  - Chest pain [Unknown]
  - Nausea [Unknown]
  - Cardiac operation [Recovering/Resolving]
  - Diarrhoea [Unknown]
  - Atrial fibrillation [Not Recovered/Not Resolved]
  - Myalgia [Unknown]

NARRATIVE: CASE EVENT DATE: 20160513
